FAERS Safety Report 9107472 (Version 3)
Quarter: 2013Q2

REPORT INFORMATION
  Report Type: Report from Study
  Country: US (occurrence: US)
  Receive Date: 20130221
  Receipt Date: 20130529
  Transmission Date: 20140414
  Serious: Yes (Other)
  Sender: FDA-Public Use
  Company Number: PHEH2013US004198

PATIENT
  Age: 55 Year
  Sex: Female

DRUGS (5)
  1. GILENYA [Suspect]
     Indication: MULTIPLE SCLEROSIS
     Dosage: 0.5 MG, QD
     Route: 048
     Dates: start: 20110419
  2. BACLOFEN [Concomitant]
     Indication: MUSCLE SPASTICITY
     Dosage: 10 MG, BID
     Route: 048
  3. LISINOPRIL HCTZ [Concomitant]
     Indication: HYPERTENSION
     Dosage: 1 DF, QD
     Dates: start: 20110705
  4. SANCTURA [Concomitant]
     Indication: NEUROGENIC BLADDER
     Dosage: 1 DF, QD
  5. GABAPENTIN [Concomitant]
     Indication: PAIN
     Dosage: 300 MG, QD

REACTIONS (3)
  - Fall [Unknown]
  - Ankle fracture [Recovered/Resolved]
  - Muscular weakness [Not Recovered/Not Resolved]
